FAERS Safety Report 9298476 (Version 1)
Quarter: 2013Q2

REPORT INFORMATION
  Report Type: Spontaneous
  Country: US (occurrence: US)
  Receive Date: 20130520
  Receipt Date: 20130520
  Transmission Date: 20140414
  Serious: No
  Sender: FDA-Public Use
  Company Number: US-ROXANE LABORATORIES, INC.-2013-RO-00809RO

PATIENT
  Sex: Male

DRUGS (1)
  1. FLUTICASONE [Suspect]
     Route: 045

REACTIONS (3)
  - Nasal congestion [Unknown]
  - Lacrimation increased [Unknown]
  - Nasal discomfort [Unknown]
